FAERS Safety Report 8518394-4 (Version None)
Quarter: 2012Q3

REPORT INFORMATION
  Report Type: 
  Country: None (occurrence: None)
  Receive Date: 20120718
  Receipt Date: 20120628
  Transmission Date: 20120928
  Serious: No
  Sender: FDA-Public Use
  Company Number: US-ASTRAZENECA-2012SE44586

PATIENT
  Sex: Female

DRUGS (1)
  1. SEROQUEL [Suspect]
     Indication: HALLUCINATION, AUDITORY
     Dosage: 100 MG THREE TIMES AT BEDTIME
     Route: 048

REACTIONS (2)
  - INTENTIONAL DRUG MISUSE [None]
  - HALLUCINATION, AUDITORY [None]
